FAERS Safety Report 6807792-2 (Version None)
Quarter: 2010Q2

REPORT INFORMATION
  Report Type: 
  Country: None (occurrence: None)
  Receive Date: 20100629
  Receipt Date: 20081218
  Transmission Date: 20101027
  Serious: No
  Sender: FDA-Public Use
  Company Number: US-PFIZER INC-2008158883

PATIENT
  Sex: Male

DRUGS (4)
  1. XANAX [Suspect]
     Indication: DEPRESSION
  2. XANAX [Suspect]
     Indication: ANXIETY
  3. NARDIL [Suspect]
     Indication: DEPRESSION
  4. NARDIL [Suspect]
     Indication: ANXIETY

REACTIONS (1)
  - DRUG INEFFECTIVE [None]
